FAERS Safety Report 21464022 (Version 1)
Quarter: 2022Q4

REPORT INFORMATION
  Report Type: Spontaneous
  Country: US (occurrence: US)
  Receive Date: 20221017
  Receipt Date: 20221017
  Transmission Date: 20230113
  Serious: No
  Sender: FDA-Public Use
  Company Number: US-ORGANON-O2210USA000057

PATIENT
  Age: 26 Year
  Sex: Female
  Weight: 81.633 kg

DRUGS (1)
  1. NUVARING [Suspect]
     Active Substance: ETHINYL ESTRADIOL\ETONOGESTREL
     Indication: Dysmenorrhoea
     Dosage: 3 WEEKS (WITH ONE WEEK REMOVED)
     Route: 067
     Dates: end: 20220828

REACTIONS (3)
  - Hypertension [Recovered/Resolved]
  - Abnormal withdrawal bleeding [Not Recovered/Not Resolved]
  - Product use in unapproved indication [Unknown]

NARRATIVE: CASE EVENT DATE: 20220101
